FAERS Safety Report 11316800 (Version 1)
Quarter: 2015Q3

REPORT INFORMATION
  Report Type: Spontaneous
  Country: GB (occurrence: None)
  Receive Date: 20150724
  Receipt Date: 20150724
  Transmission Date: 20151125
  Serious: Yes (Other)
  Sender: FDA-Public Use
  Company Number: GB-H14001-15-01362

PATIENT
  Age: 74 Year
  Sex: Female

DRUGS (11)
  1. EXENATIDE (EXENATIDE) (EXENATIDE) [Concomitant]
  2. LANSOPRAZOLE (LANSOPRAZOLE) (LANSOPRAZOLE) [Concomitant]
     Active Substance: LANSOPRAZOLE
  3. NOVOMIX (NOVOMIX) (UNKNOWN) (INSULIN ASPART, INSULIN ASPART PROTAMINE (CRYSTALLINE) ) [Concomitant]
  4. PARACETAMOL (PARACETAMOL) (PARACETAMOL) [Concomitant]
     Active Substance: ACETAMINOPHEN
  5. CO-AMOXICLAV (AUGMENTIN /00756801/) (UNKNOWN) (AMOXICILLIN SODIUM, CLAVULANATE POTASSIUM) [Suspect]
     Active Substance: AMOXICILLIN\CLAVULANATE POTASSIUM
     Indication: PRODUCT USED FOR UNKNOWN INDICATION
     Dates: start: 20150706
  6. CO-CODAMOL (PANADEINE CO) (UNKNOWN) (CODEINE PHOSPHATE, PARACETAMOL) [Concomitant]
  7. SIMVASTATIN (SIMVASTATIN) (SIMVASTATIN) [Concomitant]
     Active Substance: SIMVASTATIN
  8. E45 (AKWA TEARS /01635801/) (UNKNOWN) (WOOL FAT, PARAFFIN, LIQUID, WHITE SOFT PARAFFIN) [Concomitant]
  9. DOXYCYCLINE (DOXYCYCLINE) (DOXYCYCLINE) [Concomitant]
     Active Substance: DOXYCYCLINE
  10. DULOXETINE (DULOXETINE) (UNKNOWN) (DULOXETINE) [Concomitant]
  11. NITROFURANTOIN (NITROFURANTOIN)  (NITROFURANTOIN) [Concomitant]

REACTIONS (2)
  - Rash [None]
  - Contusion [None]

NARRATIVE: CASE EVENT DATE: 20150706
